FAERS Safety Report 11111148 (Version 1)
Quarter: 2015Q2

REPORT INFORMATION
  Report Type: Spontaneous
  Country: ES (occurrence: ES)
  Receive Date: 20150513
  Receipt Date: 20150513
  Transmission Date: 20150821
  Serious: Yes (Other)
  Sender: FDA-Public Use
  Company Number: ES-SA-2015SA063288

PATIENT
  Age: 50 Year
  Sex: Female

DRUGS (1)
  1. CLEXANE [Suspect]
     Active Substance: ENOXAPARIN SODIUM
     Indication: PROPHYLAXIS
     Route: 058
     Dates: start: 2015

REACTIONS (2)
  - Loss of consciousness [Recovered/Resolved]
  - Seizure [Recovered/Resolved]

NARRATIVE: CASE EVENT DATE: 2015
